FAERS Safety Report 17436271 (Version 1)
Quarter: 2020Q1

REPORT INFORMATION
  Report Type: Spontaneous
  Country: US (occurrence: US)
  Receive Date: 20200219
  Receipt Date: 20200219
  Transmission Date: 20200409
  Serious: No
  Sender: FDA-Public Use
  Company Number: US-LANTHEUS-LMI-2019-00049

PATIENT
  Age: 59 Year
  Sex: Male
  Weight: 117 kg

DRUGS (1)
  1. DEFINITY [Suspect]
     Active Substance: PERFLUTREN
     Indication: ECHOCARDIOGRAM
     Dosage: 4 ML, (1.3 ML DEFINITY PREPARED IN 8.7 ML NORMAL SALINE)
     Route: 040
     Dates: start: 20190125, end: 20190125

REACTIONS (6)
  - Dizziness [Recovered/Resolved]
  - Paraesthesia [Recovered/Resolved]
  - Presyncope [Recovered/Resolved]
  - Sinus congestion [Recovered/Resolved]
  - Flushing [Recovered/Resolved]
  - Throat tightness [Recovered/Resolved]

NARRATIVE: CASE EVENT DATE: 20190125
